APPROVED DRUG PRODUCT: THEOPHYLLINE
Active Ingredient: THEOPHYLLINE
Strength: 450MG
Dosage Form/Route: TABLET, EXTENDED RELEASE;ORAL
Application: A040034 | Product #001
Applicant: INWOOD LABORATORIES INC SUB FOREST LABORATORIES INC
Approved: Apr 28, 1995 | RLD: No | RS: No | Type: DISCN